FAERS Safety Report 4729354-3 (Version None)
Quarter: 2005Q3

REPORT INFORMATION
  Report Type: 
  Country: None (occurrence: None)
  Receive Date: 20050729
  Receipt Date: 20050228
  Transmission Date: 20060218
  Serious: Yes (Other)
  Sender: FDA-Public Use
  Company Number: BR-ABBOTT-05P-020-0292951-00

PATIENT
  Sex: Male
  Weight: 75 kg

DRUGS (27)
  1. KALETRA [Suspect]
     Indication: HIV INFECTION
     Dosage: LOPINAVIR 1066.4 MILLIGRAMS AND RITONAVIR 266.4 MILLIGRAMS
     Route: 048
     Dates: start: 20040503, end: 20040825
  2. KALETRA [Suspect]
     Route: 048
     Dates: start: 20040908, end: 20040915
  3. KALETRA [Suspect]
     Route: 048
     Dates: start: 20040915
  4. CAPRAVIRINE [Suspect]
     Indication: HIV INFECTION
     Route: 048
     Dates: start: 20040803, end: 20040825
  5. CAPRAVIRINE [Suspect]
     Route: 048
     Dates: start: 20040915
  6. TENOFOVIR [Concomitant]
     Indication: HIV INFECTION
     Route: 048
     Dates: start: 20040503
  7. LAMIVUDINE [Concomitant]
     Indication: HIV INFECTION
     Route: 048
     Dates: start: 20040503, end: 20040825
  8. LAMIVUDINE [Concomitant]
     Dates: start: 20040908, end: 20040909
  9. DIDANOSINE [Concomitant]
     Indication: HIV INFECTION
     Route: 048
     Dates: start: 20040503
  10. DIDANOSINE [Concomitant]
     Dates: start: 20040908
  11. ENALAPRIL MALEATE [Concomitant]
     Indication: HYPERTENSION
     Route: 048
     Dates: start: 19991111
  12. ABACAVIR [Concomitant]
     Indication: DRUG USE FOR UNKNOWN INDICATION
  13. ABACAVIR [Concomitant]
     Dates: start: 20040909
  14. ZIDOVUDINE [Concomitant]
     Indication: DRUG USE FOR UNKNOWN INDICATION
  15. ZIDOVUDINE [Concomitant]
     Dates: start: 20040909
  16. CLAVULIN [Concomitant]
     Indication: DRUG USE FOR UNKNOWN INDICATION
     Dates: start: 20041026, end: 20041030
  17. METHYL METHACLYLATE [Concomitant]
     Indication: DRUG USE FOR UNKNOWN INDICATION
     Dates: start: 20040811, end: 20040811
  18. DIDANOSINE [Concomitant]
     Indication: DRUG USE FOR UNKNOWN INDICATION
     Dates: end: 20040825
  19. DIDANOSINE [Concomitant]
     Dates: start: 20040908
  20. LAMIVUDINE + ZIDOVUDINE [Concomitant]
     Indication: DRUG USE FOR UNKNOWN INDICATION
     Dosage: 600 MG / 3TC 300 MG
     Dates: start: 20040909
  21. ABACAVIR SULFATE [Concomitant]
     Indication: DRUG USE FOR UNKNOWN INDICATION
     Dates: start: 20040909
  22. CLAVULIN [Concomitant]
     Dates: start: 20041026, end: 20041030
  23. ALL OTHER THERAPEUTIC PRODUCTS [Concomitant]
     Indication: DRUG USE FOR UNKNOWN INDICATION
     Dates: start: 20040811, end: 20040822
  24. ALL OTHER THERAPEUTIC PRODUCTS [Concomitant]
     Dates: start: 20041121, end: 20041231
  25. VIREAD [Concomitant]
     Indication: DRUG USE FOR UNKNOWN INDICATION
     Dates: end: 20040825
  26. CAPTOPRIL [Concomitant]
     Indication: HYPERTENSION
     Route: 048
     Dates: start: 19991111, end: 20041121
  27. LAMIVUDINE [Concomitant]
     Indication: DRUG USE FOR UNKNOWN INDICATION
     Dates: start: 20040908, end: 20040909

REACTIONS (2)
  - NEPHROPATHY TOXIC [None]
  - PROTEINURIA [None]
